FAERS Safety Report 19744333 (Version 1)
Quarter: 2021Q3

REPORT INFORMATION
  Report Type: Spontaneous
  Country: US (occurrence: US)
  Receive Date: 20210825
  Receipt Date: 20210825
  Transmission Date: 20211014
  Serious: No
  Sender: FDA-Public Use
  Company Number: US-SA-2021SA280756

PATIENT
  Sex: Female

DRUGS (1)
  1. DUPIXENT [Suspect]
     Active Substance: DUPILUMAB
     Indication: DERMATITIS ATOPIC
     Dosage: UNK
     Route: 058
     Dates: end: 202102

REACTIONS (4)
  - Conjunctivitis [Recovered/Resolved]
  - Product dose omission issue [Unknown]
  - Rash [Recovered/Resolved]
  - Dermatitis atopic [Unknown]

NARRATIVE: CASE EVENT DATE: 202102
